FAERS Safety Report 15492219 (Version 1)
Quarter: 2018Q4

REPORT INFORMATION
  Report Type: Spontaneous
  Country: US (occurrence: US)
  Receive Date: 20181004
  Receipt Date: 20181004
  Transmission Date: 20190205
  Serious: Yes (Hospitalization)
  Sender: FDA-Public Use
  Company Number: None

PATIENT
  Age: 86 Year
  Sex: Female

DRUGS (4)
  1. LAVOTHYROXIN [Concomitant]
  2. ASPIRIN. [Concomitant]
     Active Substance: ASPIRIN
  3. AVALIDE [Concomitant]
     Active Substance: HYDROCHLOROTHIAZIDE\IRBESARTAN
  4. VERZENIO [Suspect]
     Active Substance: ABEMACICLIB
     Indication: BREAST CANCER
     Route: 048
     Dates: start: 20180830

REACTIONS (4)
  - Chest pain [None]
  - Dyspnoea [None]
  - Therapy change [None]
  - Fatigue [None]

NARRATIVE: CASE EVENT DATE: 20180923
